FAERS Safety Report 4877089-9 (Version None)
Quarter: 2005Q4

REPORT INFORMATION
  Report Type: 
  Country: None (occurrence: None)
  Receive Date: 20051206
  Receipt Date: 20050822
  Transmission Date: 20060501
  Serious: No
  Sender: FDA-Public Use
  Company Number: USA0508106098

PATIENT
  Age: 61 Year
  Sex: Female

DRUGS (6)
  1. CYMBALTA [Suspect]
     Indication: DEPRESSION
     Dosage: 60 MG
     Dates: start: 20050808
  2. LEXAPRO [Concomitant]
  3. LORAZEPAM [Concomitant]
  4. CLOZAPINE [Concomitant]
  5. DAYPRO [Concomitant]
  6. ZANTAC [Concomitant]

REACTIONS (1)
  - TINNITUS [None]
